FAERS Safety Report 9043303 (Version 1)
Quarter: 2013Q1

REPORT INFORMATION
  Report Type: Report from Study
  Country: US (occurrence: US)
  Receive Date: 20130129
  Receipt Date: 20130129
  Transmission Date: 20140127
  Serious: No
  Sender: FDA-Public Use
  Company Number: US-ABBOTT-12P-163-0914425-00

PATIENT
  Age: 58 Year
  Sex: Male

DRUGS (6)
  1. HUMIRA 40 MG/0.8 ML PEN [Suspect]
     Indication: PSORIATIC ARTHROPATHY
     Dosage: FIRST INJECTION
     Dates: start: 20120306
  2. PREDNISONE [Concomitant]
     Indication: PSORIATIC ARTHROPATHY
     Dosage: 10 MG DAILY
  3. FOLIC ACID [Concomitant]
     Indication: VITAMIN SUPPLEMENTATION
     Dosage: 1 MG DAILY
  4. NORVASC [Concomitant]
     Indication: BLOOD PRESSURE
     Dosage: 10 MG DAILY
  5. LISINOPRIL [Concomitant]
     Indication: BLOOD PRESSURE
     Dosage: 40 MG DAILY
  6. GABAPENTIN [Concomitant]
     Indication: NEUROPATHY PERIPHERAL
     Dosage: 300  MG, 2 PILLS DAILY

REACTIONS (1)
  - Fatigue [Recovering/Resolving]
